APPROVED DRUG PRODUCT: CISATRACURIUM BESYLATE
Active Ingredient: CISATRACURIUM BESYLATE
Strength: EQ 2MG BASE/ML
Dosage Form/Route: INJECTABLE;INJECTION
Application: A205873 | Product #001
Applicant: ACCORD HEALTHCARE INC
Approved: Jun 16, 2017 | RLD: No | RS: No | Type: DISCN